FAERS Safety Report 8835611 (Version 1)
Quarter: 2012Q4

REPORT INFORMATION
  Report Type: 
  Country: CA (occurrence: CA)
  Receive Date: 20121011
  Receipt Date: 20121011
  Transmission Date: 20130627
  Serious: Yes (Other)
  Sender: FDA-Public Use
  Company Number: CA-JNJFOC-20121006383

PATIENT
  Sex: Female

DRUGS (8)
  1. XARELTO [Suspect]
     Indication: PULMONARY THROMBOSIS
     Route: 048
  2. XARELTO [Suspect]
     Indication: PULMONARY THROMBOSIS
     Route: 048
     Dates: start: 201209
  3. XARELTO [Suspect]
     Indication: CEREBROVASCULAR ACCIDENT PROPHYLAXIS
     Route: 048
  4. XARELTO [Suspect]
     Indication: CEREBROVASCULAR ACCIDENT PROPHYLAXIS
     Route: 048
     Dates: start: 201209
  5. RAMIPRIL [Concomitant]
  6. IRON [Concomitant]
     Route: 042
     Dates: start: 201209
  7. OXYGEN [Concomitant]
     Indication: CHRONIC OBSTRUCTIVE PULMONARY DISEASE
  8. IRON SUPPLEMENT [Concomitant]
     Route: 048

REACTIONS (4)
  - Yellow skin [Unknown]
  - Hypertension [Unknown]
  - Pruritus [Unknown]
  - Anxiety [Unknown]
